FAERS Safety Report 11973652 (Version 1)
Quarter: 2016Q1

REPORT INFORMATION
  Report Type: Report from Study
  Country: US (occurrence: US)
  Receive Date: 20160128
  Receipt Date: 20160128
  Transmission Date: 20160526
  Serious: Yes (Hospitalization)
  Sender: FDA-Public Use
  Company Number: US-ABBVIE-15K-163-1395989-00

PATIENT
  Age: 56 Year
  Sex: Female
  Weight: 76.73 kg

DRUGS (2)
  1. HUMIRA [Suspect]
     Active Substance: ADALIMUMAB
     Route: 058
     Dates: start: 20150604
  2. HUMIRA [Suspect]
     Active Substance: ADALIMUMAB
     Indication: RHEUMATOID ARTHRITIS
     Route: 058
     Dates: start: 20150326

REACTIONS (2)
  - Gait disturbance [Unknown]
  - Hip arthroplasty [Recovered/Resolved]

NARRATIVE: CASE EVENT DATE: 20150506
